FAERS Safety Report 18480239 (Version 3)
Quarter: 2020Q4

REPORT INFORMATION
  Report Type: Spontaneous
  Country: DE (occurrence: DE)
  Receive Date: 20201109
  Receipt Date: 20201207
  Transmission Date: 20210114
  Serious: Yes (Other)
  Sender: FDA-Public Use
  Company Number: DE-BAYER-2020-237792

PATIENT
  Age: 27 Year
  Sex: Female

DRUGS (1)
  1. KYLEENA [Suspect]
     Active Substance: LEVONORGESTREL
     Indication: CONTRACEPTION
     Dosage: 17.5 ?G PER DAY, CONTINUOUSLY
     Route: 015
     Dates: start: 20190703, end: 20201008

REACTIONS (6)
  - Complication of device removal [Recovered/Resolved]
  - Complication of device insertion [None]
  - Device use error [None]
  - Device breakage [None]
  - Abdominal pain [None]
  - Device use error [None]

NARRATIVE: CASE EVENT DATE: 20190703
